FAERS Safety Report 10405647 (Version 2)
Quarter: 2014Q3

REPORT INFORMATION
  Report Type: Not Available
  Country: US (occurrence: US)
  Receive Date: 20140825
  Receipt Date: 20140825
  Transmission Date: 20150326
  Serious: No
  Sender: FDA-Public Use
  Company Number: US-LUPIN PHARMACEUTICALS INC.-E2B_00002031

PATIENT
  Age: 42 Year
  Sex: Female

DRUGS (1)
  1. SERTRALINE TABLETS USP 100 MG [Suspect]
     Active Substance: SERTRALINE HYDROCHLORIDE
     Indication: DEPRESSION
     Dosage: ONE AND HALF TABLET DAILY, 150MG
     Dates: start: 20140424, end: 20140510

REACTIONS (3)
  - Paraesthesia oral [Recovered/Resolved]
  - Product taste abnormal [Unknown]
  - Hypoaesthesia oral [Recovered/Resolved]

NARRATIVE: CASE EVENT DATE: 20140424
